FAERS Safety Report 25121307 (Version 1)
Quarter: 2025Q1

REPORT INFORMATION
  Report Type: Other
  Country: GA (occurrence: GA)
  Receive Date: 20250326
  Receipt Date: 20250326
  Transmission Date: 20250408
  Serious: Yes (Life-Threatening, Hospitalization, Other)
  Sender: WOODWARD PHARMA SERVICES
  Company Number: GA-WW-2025-40084408

PATIENT
  Age: 39 Year
  Sex: Female

DRUGS (1)
  1. FLUCONAZOLE [Suspect]
     Active Substance: FLUCONAZOLE
     Indication: Oral candidiasis

REACTIONS (1)
  - Stevens-Johnson syndrome [Recovered/Resolved]
